FAERS Safety Report 7920145 (Version 3)
Quarter: 2014Q2

REPORT INFORMATION
  Report Type: Report from Study
  Country: US (occurrence: US)
  Receive Date: 20110429
  Receipt Date: 20140429
  Transmission Date: 20141212
  Serious: No
  Sender: FDA-Public Use
  Company Number: PHHY2010US79642

PATIENT
  Age: 73 Year
  Sex: Male
  Weight: 78.91 kg

DRUGS (10)
  1. TASIGNA [Suspect]
     Indication: CHRONIC MYELOID LEUKAEMIA
     Dosage: 200 MG, BID
     Route: 048
  2. TASIGNA [Suspect]
     Dosage: 800 MG, DAILY
     Route: 048
  3. TASIGNA [Suspect]
     Dosage: 400 MG, BID
     Route: 048
  4. NORVASC [Concomitant]
     Dosage: 2.5 MG, UNK
  5. TOPROL XL [Concomitant]
     Dosage: 25 MG, UNK
  6. PREVACID [Concomitant]
     Dosage: 30 MG, UNK
  7. OMEPRAZOLE [Concomitant]
     Dosage: 10 MG, UNK
  8. AMLODIPINE [Concomitant]
     Dosage: 2.5 MG, UNK
  9. METOPROLOL [Concomitant]
     Dosage: UNK UKN, UNK
  10. LIPITOR [Concomitant]
     Dosage: UNK UKN, UNK

REACTIONS (5)
  - Lacrimation increased [Unknown]
  - Ocular hyperaemia [Unknown]
  - Pruritus [Recovering/Resolving]
  - Eye pruritus [Recovering/Resolving]
  - Eyelids pruritus [Recovering/Resolving]
